FAERS Safety Report 7957039-9 (Version None)
Quarter: 2011Q4

REPORT INFORMATION
  Report Type: 
  Country: None (occurrence: None)
  Receive Date: 20111205
  Receipt Date: 20111205
  Transmission Date: 20120403
  Serious: Yes (Hospitalization)
  Sender: FDA-Public Use
  Company Number: None

PATIENT
  Age: 19 Year
  Sex: Female
  Weight: 56.699 kg

DRUGS (1)
  1. TRI-SPRINTEC [Suspect]
     Indication: CONTRACEPTION
     Dosage: DAILY PILL
     Route: 048
     Dates: start: 20100601, end: 20111128

REACTIONS (3)
  - SKIN DISCOLOURATION [None]
  - HYPERSENSITIVITY [None]
  - CHEST DISCOMFORT [None]
